FAERS Safety Report 7771547-5 (Version None)
Quarter: 2011Q3

REPORT INFORMATION
  Report Type: 
  Country: None (occurrence: None)
  Receive Date: 20110922
  Receipt Date: 20110413
  Transmission Date: 20111222
  Serious: Yes (Other)
  Sender: FDA-Public Use
  Company Number: US-ASTRAZENECA-2009UW14929

PATIENT
  Age: 566 Month
  Sex: Male
  Weight: 149.7 kg

DRUGS (26)
  1. SEROQUEL [Suspect]
     Dosage: 200 QD AND 600 HS
     Route: 048
     Dates: start: 20040501
  2. PROPRANOLOL [Concomitant]
     Route: 048
     Dates: start: 20090501
  3. SEROQUEL [Suspect]
     Indication: SCHIZOPHRENIA
     Dosage: 200-800 MG
     Route: 048
     Dates: start: 20040101
  4. SEROQUEL [Suspect]
     Indication: PSYCHOTIC DISORDER
     Dosage: 200-800 MG
     Route: 048
     Dates: start: 20040101
  5. LISINOPRIL [Concomitant]
     Indication: BLOOD PRESSURE
     Dosage: ONE HALF TABLET EVERYDAY
     Route: 048
     Dates: start: 20090501
  6. HYDROXYZINE [Concomitant]
     Dates: end: 20030101
  7. COUMADIN [Concomitant]
  8. SEROQUEL [Suspect]
     Dosage: 200 QD AND 600 HS
     Route: 048
     Dates: start: 20040501
  9. ABILIFY [Concomitant]
     Indication: HALLUCINATION, AUDITORY
     Dates: start: 20060101
  10. HYDROCHLOROTHIAZIDE [Concomitant]
     Indication: BLOOD PRESSURE
     Route: 048
     Dates: start: 20090618
  11. PAXIL [Concomitant]
     Dates: start: 20040701
  12. PROLIXIN DECANOATE [Concomitant]
  13. VIAGRA [Concomitant]
     Dates: start: 20050101
  14. SEROQUEL [Suspect]
     Dosage: 200 QD AND 600 HS
     Route: 048
     Dates: start: 20040501
  15. ZYPREXA [Concomitant]
  16. NEURONTIN [Concomitant]
     Dates: end: 20030101
  17. SEROQUEL [Suspect]
     Indication: MENTAL DISORDER
     Dosage: 200-800 MG
     Route: 048
     Dates: start: 20040101
  18. SEROQUEL [Suspect]
     Dosage: 200 QD AND 600 HS
     Route: 048
     Dates: start: 20040501
  19. ABILIFY [Concomitant]
     Indication: AFFECTIVE DISORDER
     Dates: start: 20060101
  20. PAXIL [Concomitant]
     Dates: start: 20050501
  21. WELLBUTRIN SR [Concomitant]
     Dates: start: 20050101
  22. RISPERDAL [Concomitant]
     Dosage: 1 MG TO 3 MG
     Dates: start: 20020101, end: 20060301
  23. SEROQUEL [Suspect]
     Indication: DEPRESSION
     Dosage: 200-800 MG
     Route: 048
     Dates: start: 20040101
  24. PAROXETINE HYDROCHLORIDE [Concomitant]
     Indication: AFFECTIVE DISORDER
     Dosage: ONE AND ONE HALF TABLET AT BEDTIME
     Route: 048
     Dates: start: 20090201
  25. KLONOPIN [Concomitant]
     Dates: start: 20060501
  26. VITAMIN E [Concomitant]
     Dates: start: 20051101

REACTIONS (7)
  - EXTRAPYRAMIDAL DISORDER [None]
  - ERECTILE DYSFUNCTION [None]
  - DYSKINESIA [None]
  - TYPE 2 DIABETES MELLITUS [None]
  - OBESITY [None]
  - TYPE 1 DIABETES MELLITUS [None]
  - TARDIVE DYSKINESIA [None]
